FAERS Safety Report 9496298 (Version 1)
Quarter: 2013Q3

REPORT INFORMATION
  Report Type: Spontaneous
  Country: US (occurrence: US)
  Receive Date: 20130904
  Receipt Date: 20130904
  Transmission Date: 20140515
  Serious: No
  Sender: FDA-Public Use
  Company Number: US-BAYER-2013-106455

PATIENT
  Age: 83 Year
  Sex: Male
  Weight: 73 kg

DRUGS (7)
  1. ALEVE CAPLET [Suspect]
     Indication: SLEEP DISORDER THERAPY
     Dosage: 1 DF, PRN
     Route: 048
     Dates: start: 2011
  2. THYROXINE [Concomitant]
  3. LIPITOR [Concomitant]
  4. COREG [Concomitant]
  5. LISINOPRIL [Concomitant]
  6. PROZAC [Concomitant]
  7. NEXIUM [Concomitant]

REACTIONS (1)
  - Off label use [None]
